FAERS Safety Report 18473170 (Version 2)
Quarter: 2023Q2

REPORT INFORMATION
  Report Type: Spontaneous
  Country: US (occurrence: US)
  Receive Date: 20201106
  Receipt Date: 20230629
  Transmission Date: 20230722
  Serious: No
  Sender: FDA-Public Use
  Company Number: US-NOVARTISTESTPH-NVSC2020US295568

PATIENT
  Sex: Female

DRUGS (2)
  1. PROMACTA [Suspect]
     Active Substance: ELTROMBOPAG OLAMINE
     Indication: Immune thrombocytopenia
     Dosage: 37.5 MG, QD
     Route: 048
     Dates: start: 20200211
  2. PROMACTA [Suspect]
     Active Substance: ELTROMBOPAG OLAMINE
     Dosage: 75 MG, BID
     Route: 065
     Dates: start: 202306

REACTIONS (6)
  - Platelet count decreased [Unknown]
  - Constipation [Unknown]
  - Flatulence [Unknown]
  - Tinnitus [Recovered/Resolved]
  - Abdominal pain upper [Unknown]
  - Dizziness [Unknown]
